FAERS Safety Report 18716727 (Version 1)
Quarter: 2021Q1

REPORT INFORMATION
  Report Type: Report from Study
  Country: US (occurrence: US)
  Receive Date: 20210108
  Receipt Date: 20210108
  Transmission Date: 20210419
  Serious: No
  Sender: FDA-Public Use
  Company Number: US-SUNOVION-2020SUN003867

PATIENT
  Age: 68 Year
  Weight: 46.26 kg

DRUGS (11)
  1. ONGENTYS [Concomitant]
     Active Substance: OPICAPONE
     Dosage: 50 MG
     Route: 048
  2. OXYCODONE [Concomitant]
     Active Substance: OXYCODONE
     Dosage: 5 MG
     Route: 048
  3. SINEMET [Concomitant]
     Active Substance: CARBIDOPA\LEVODOPA
     Dosage: 25?100 MG
     Route: 048
  4. XANAX [Concomitant]
     Active Substance: ALPRAZOLAM
     Dosage: 2 MG
     Route: 048
  5. KYNMOBI [Suspect]
     Active Substance: APOMORPHINE HYDROCHLORIDE
     Dosage: UNK
     Route: 060
     Dates: start: 20201221, end: 20201221
  6. MOTEGRITY [Concomitant]
     Active Substance: PRUCALOPRIDE SUCCINATE
     Dosage: 2 MG
     Route: 048
  7. STALEVO [Concomitant]
     Active Substance: CARBIDOPA\ENTACAPONE\LEVODOPA
     Dosage: 37.5?150?200 MG
     Route: 048
  8. XADAGO [Concomitant]
     Active Substance: SAFINAMIDE MESYLATE
     Dosage: 50 MG
     Route: 048
  9. CLONAZEPAM. [Concomitant]
     Active Substance: CLONAZEPAM
     Dosage: 0.5 MG
     Route: 048
  10. PRISTIQ EXTENDED?RELEASE [Concomitant]
     Active Substance: DESVENLAFAXINE SUCCINATE
     Dosage: 100 MG
     Route: 048
  11. ADVIL [Concomitant]
     Active Substance: IBUPROFEN
     Dosage: 200 MG
     Route: 048

REACTIONS (2)
  - Dry mouth [Recovered/Resolved]
  - Oral pain [Recovered/Resolved]

NARRATIVE: CASE EVENT DATE: 20201221
